FAERS Safety Report 21295118 (Version 1)
Quarter: 2022Q3

REPORT INFORMATION
  Report Type: Spontaneous
  Country: US (occurrence: US)
  Receive Date: 20220905
  Receipt Date: 20220905
  Transmission Date: 20221026
  Serious: Yes (Other)
  Sender: FDA-Public Use
  Company Number: US-JNJFOC-20220861454

PATIENT

DRUGS (1)
  1. EVITHROM [Suspect]
     Active Substance: THROMBIN HUMAN
     Indication: Product used for unknown indication
     Route: 065

REACTIONS (2)
  - Surgery [Unknown]
  - Product physical consistency issue [Unknown]

NARRATIVE: CASE EVENT DATE: 20220801
